FAERS Safety Report 6544810-3 (Version None)
Quarter: 2010Q1

REPORT INFORMATION
  Report Type: 
  Country: None (occurrence: None)
  Receive Date: 20100121
  Receipt Date: 20100110
  Transmission Date: 20100710
  Serious: Yes (Other)
  Sender: FDA-Public Use
  Company Number: US-BAXTER-2010BH000851

PATIENT
  Sex: Male

DRUGS (1)
  1. HEPARIN SODIUM INJECTION [Suspect]
     Indication: DRUG USE FOR UNKNOWN INDICATION
     Route: 065
     Dates: start: 20071201

REACTIONS (8)
  - ABDOMINAL PAIN [None]
  - ASTHENIA [None]
  - CHEST PAIN [None]
  - DIZZINESS [None]
  - HEADACHE [None]
  - HEPARIN-INDUCED THROMBOCYTOPENIA [None]
  - HYPERSENSITIVITY [None]
  - SYNCOPE [None]
